FAERS Safety Report 6359375-9 (Version None)
Quarter: 2009Q3

REPORT INFORMATION
  Report Type: 
  Country: None (occurrence: None)
  Receive Date: 20090914
  Receipt Date: 20090908
  Transmission Date: 20100115
  Serious: Yes (Death)
  Sender: FDA-Public Use
  Company Number: 2009SP024183

PATIENT
  Age: 72 Year
  Sex: Male

DRUGS (2)
  1. DANAPAROID SODIUM (S-P) (DANAPAROID SODIUM) [Suspect]
     Indication: HEPARIN-INDUCED THROMBOCYTOPENIA
  2. LOW MOLECULAR WEIGHT HEPARIN (HEPARIN-FRACTION) [Suspect]
     Indication: PULMONARY EMBOLISM

REACTIONS (3)
  - ARTERIAL THROMBOSIS [None]
  - HEPARIN-INDUCED THROMBOCYTOPENIA [None]
  - MYOCARDIAL INFARCTION [None]
